FAERS Safety Report 7294717-1 (Version None)
Quarter: 2011Q1

REPORT INFORMATION
  Report Type: 
  Country: None (occurrence: None)
  Receive Date: 20110216
  Receipt Date: 20110203
  Transmission Date: 20110831
  Serious: Yes (Hospitalization)
  Sender: FDA-Public Use
  Company Number: US-JNJFOC-20100101601

PATIENT
  Sex: Male
  Weight: 73.6 kg

DRUGS (9)
  1. FENTANYL [Concomitant]
     Indication: CROHN'S DISEASE
     Route: 062
  2. PLACEBO [Suspect]
     Route: 058
  3. USTEKINUMAB [Suspect]
     Route: 042
  4. USTEKINUMAB [Suspect]
     Indication: CROHN'S DISEASE
     Route: 042
  5. IMURAN [Concomitant]
     Indication: CROHN'S DISEASE
     Route: 048
  6. HUMIRA [Concomitant]
     Indication: CROHN'S DISEASE
     Route: 058
  7. CIPROFLOXACIN [Concomitant]
     Indication: CROHN'S DISEASE
     Route: 048
  8. PLACEBO [Suspect]
     Indication: CROHN'S DISEASE
     Route: 058
  9. ENTOCORT EC [Concomitant]
     Indication: CROHN'S DISEASE
     Route: 048

REACTIONS (1)
  - ABDOMINAL ABSCESS [None]
